FAERS Safety Report 5770109-9 (Version None)
Quarter: 2008Q2

REPORT INFORMATION
  Report Type: 
  Country: None (occurrence: None)
  Receive Date: 20080613
  Receipt Date: 20080417
  Transmission Date: 20081010
  Serious: No
  Sender: FDA-Public Use
  Company Number: US-ABBOTT-08P-163-0448142-00

PATIENT
  Sex: Female
  Weight: 72.64 kg

DRUGS (2)
  1. HUMIRA [Suspect]
     Indication: RHEUMATOID ARTHRITIS
     Route: 058
     Dates: start: 20050601
  2. MELOXICAM [Concomitant]
     Indication: INFLAMMATION
     Route: 048
     Dates: start: 20050601

REACTIONS (2)
  - INFLUENZA [None]
  - RHEUMATOID ARTHRITIS [None]
